FAERS Safety Report 4661138-7 (Version None)
Quarter: 2005Q2

REPORT INFORMATION
  Report Type: 
  Country: None (occurrence: None)
  Receive Date: 20050428
  Receipt Date: 20050307
  Transmission Date: 20051028
  Serious: Yes (Other)
  Sender: FDA-Public Use
  Company Number: 397840

PATIENT
  Sex: Male

DRUGS (1)
  1. NAPROSYN [Suspect]
     Dosage: ORAL
     Route: 048
     Dates: start: 20000315

REACTIONS (1)
  - MYOCARDIAL INFARCTION [None]
